FAERS Safety Report 16200619 (Version 2)
Quarter: 2019Q2

REPORT INFORMATION
  Report Type: Spontaneous
  Country: JP (occurrence: JP)
  Receive Date: 20190416
  Receipt Date: 20190423
  Transmission Date: 20190711
  Serious: Yes (Other)
  Sender: FDA-Public Use
  Company Number: JP-TEVA-2019-JP-002205J

PATIENT
  Age: 91 Year
  Sex: Female

DRUGS (13)
  1. LANSOPRAZOLE OD TABLET 30MG ^TAKEDA TEVA^ [Suspect]
     Active Substance: LANSOPRAZOLE
     Indication: PRODUCT USED FOR UNKNOWN INDICATION
     Dosage: 15 MILLIGRAM DAILY;
     Route: 048
     Dates: start: 20190405, end: 20190407
  2. THYRADIN S [Concomitant]
     Active Substance: LEVOTHYROXINE SODIUM
     Dosage: 50 MICROGRAM DAILY; AFTER BREAKFAST
     Route: 048
  3. RABEPRAZOLE SODIUM TABLET 20MG TYK [Suspect]
     Active Substance: RABEPRAZOLE SODIUM
     Indication: PRODUCT USED FOR UNKNOWN INDICATION
     Dosage: 20 MILLIGRAM DAILY;
     Route: 048
     Dates: start: 20190407, end: 20190409
  4. TOARASET [Concomitant]
     Dosage: 2 DOSAGE FORMS DAILY; AFTER BREAKFAST AND DINNER
     Route: 048
  5. MONTELUKAST [Concomitant]
     Active Substance: MONTELUKAST SODIUM
     Dosage: 10 MILLIGRAM DAILY; AFTER BREAKFAST
     Route: 048
  6. ROZEREM [Concomitant]
     Active Substance: RAMELTEON
     Dosage: 8 MILLIGRAM DAILY; AFTER DINNER
     Route: 048
  7. TETRAMIDE [Concomitant]
     Active Substance: MIANSERIN
     Dosage: 20 MILLIGRAM DAILY; AFTER DINNER
     Route: 048
  8. MIRTAZAPINE. [Concomitant]
     Active Substance: MIRTAZAPINE
     Dosage: 15 MILLIGRAM DAILY; AFTER DINNER
     Route: 048
  9. PITAVASTATIN CA [Concomitant]
     Active Substance: PITAVASTATIN CALCIUM
     Dosage: 1 MILLIGRAM DAILY; AFTER DINNER
     Route: 048
  10. CALONAL [Concomitant]
     Active Substance: ACETAMINOPHEN
     Dosage: 1200 MILLIGRAM DAILY; AFTER EVERY MEAL
     Route: 048
  11. FEBURIC [Concomitant]
     Active Substance: FEBUXOSTAT
     Dosage: 20 MILLIGRAM DAILY; AFTER DINNER
     Route: 048
  12. MINODRONIC ACID HYDRATE [Concomitant]
     Active Substance: MINODRONIC ACID
     Dosage: ON AWAKENING, ON THIRD MONDAYS
     Route: 048
  13. ALPEED [Concomitant]
     Active Substance: EPINASTINE HYDROCHLORIDE
     Dosage: 20 MILLIGRAM DAILY; AFTER DINNER
     Route: 048

REACTIONS (1)
  - Melaena [Recovered/Resolved]

NARRATIVE: CASE EVENT DATE: 20190405
